FAERS Safety Report 16547837 (Version 1)
Quarter: 2019Q3

REPORT INFORMATION
  Report Type: Spontaneous
  Country: US (occurrence: US)
  Receive Date: 20190709
  Receipt Date: 20190709
  Transmission Date: 20191004
  Serious: No
  Sender: FDA-Public Use
  Company Number: US-SA-2019SA179673

PATIENT
  Age: 67 Year
  Sex: Female

DRUGS (2)
  1. APIDRA [Suspect]
     Active Substance: INSULIN GLULISINE
     Dosage: UNK
     Route: 065
  2. LANTUS SOLOSTAR [Suspect]
     Active Substance: INSULIN GLARGINE
     Dosage: 24 U, HS
     Route: 065

REACTIONS (2)
  - Extra dose administered [Unknown]
  - Drug ineffective [Unknown]
